FAERS Safety Report 6218074-4 (Version None)
Quarter: 2009Q2

REPORT INFORMATION
  Report Type: 
  Country: None (occurrence: None)
  Receive Date: 20090608
  Receipt Date: 20090529
  Transmission Date: 20091009
  Serious: Yes (Hospitalization, Other)
  Sender: FDA-Public Use
  Company Number: US-ABBOTT-09P-163-0576688-00

PATIENT
  Age: 77 Year
  Sex: Male

DRUGS (4)
  1. WARFARIN [Suspect]
     Indication: AORTIC VALVE REPLACEMENT
     Dosage: NOT REPORTED
  2. TYLENOL (CAPLET) [Concomitant]
     Indication: PAIN
     Dosage: NOT REPORTED
  3. ANTIBIOTIC [Concomitant]
     Indication: PROPHYLAXIS
     Dosage: NOT REPORTED
  4. POVIDONE IODINE [Concomitant]
     Indication: DRUG USE FOR UNKNOWN INDICATION
     Dosage: NOT REPORTED

REACTIONS (1)
  - COMPARTMENT SYNDROME [None]
